FAERS Safety Report 8970125 (Version 1)
Quarter: 2012Q4

REPORT INFORMATION
  Report Type: 
  Country: CN (occurrence: CN)
  Receive Date: 20121217
  Receipt Date: 20121217
  Transmission Date: 20130627
  Serious: Yes (Other)
  Sender: FDA-Public Use
  Company Number: PHHY2012CN109106

PATIENT

DRUGS (7)
  1. DIOVAN [Suspect]
     Indication: HYPERTENSION
     Dosage: 80 mg, QD
     Route: 048
     Dates: start: 20101108, end: 20101222
  2. DONEPEZIL [Suspect]
     Indication: DEMENTIA
  3. IDEBENONE [Suspect]
     Indication: DEMENTIA
  4. ATORVASTATIN [Suspect]
  5. PROBUCOL [Suspect]
  6. ASPIRIN [Suspect]
  7. CALCIMAR//CALCITONIN, SALMON [Suspect]
     Indication: OSTEOPOROSIS

REACTIONS (5)
  - Herpes virus infection [Recovering/Resolving]
  - Blister [Recovering/Resolving]
  - Rash [Recovering/Resolving]
  - Ulcer [Recovering/Resolving]
  - Scab [Recovering/Resolving]
